FAERS Safety Report 22271075 (Version 6)
Quarter: 2024Q2

REPORT INFORMATION
  Report Type: Spontaneous
  Country: US (occurrence: US)
  Receive Date: 20230501
  Receipt Date: 20240612
  Transmission Date: 20240716
  Serious: Yes (Hospitalization, Other)
  Sender: FDA-Public Use
  Company Number: US-MYLANLABS-2023M1040687

PATIENT

DRUGS (2)
  1. SEMGLEE (INSULIN GLARGINE-YFGN) [Suspect]
     Active Substance: INSULIN GLARGINE\INSULIN GLARGINE-YFGN
     Indication: Type 2 diabetes mellitus
     Dosage: 15 INTERNATIONAL UNIT, QD (15 UNITS AT NIGHT, RECOMMENDED AT BED TIME)
     Route: 058
  2. SEMGLEE (INSULIN GLARGINE-YFGN) [Suspect]
     Active Substance: INSULIN GLARGINE\INSULIN GLARGINE-YFGN
     Dosage: 30 UNITS/ML, QD
     Route: 058

REACTIONS (6)
  - Seizure [Unknown]
  - Glycosylated haemoglobin increased [Unknown]
  - Weight decreased [Unknown]
  - Device mechanical issue [Unknown]
  - Device malfunction [Unknown]
  - Device delivery system issue [Unknown]
